FAERS Safety Report 6047880-4 (Version None)
Quarter: 2009Q1

REPORT INFORMATION
  Report Type: 
  Country: None (occurrence: None)
  Receive Date: 20090122
  Receipt Date: 20090122
  Transmission Date: 20090719
  Serious: Yes (Hospitalization)
  Sender: FDA-Public Use
  Company Number: None

PATIENT
  Age: 57 Year
  Sex: Male

DRUGS (1)
  1. SULFAMETHOXAZOLE AND TRIMETHOPRIM [Suspect]
     Indication: EAR INFECTION
     Dosage: 1 TAB BID PO
     Route: 048
     Dates: start: 20081219, end: 20081231

REACTIONS (7)
  - CREPITATIONS [None]
  - EYE PAIN [None]
  - OTITIS MEDIA [None]
  - RASH [None]
  - RHONCHI [None]
  - TOOTHACHE [None]
  - WHEEZING [None]
